FAERS Safety Report 6334773-8 (Version None)
Quarter: 2009Q3

REPORT INFORMATION
  Report Type: 
  Country: None (occurrence: None)
  Receive Date: 20090831
  Receipt Date: 20090825
  Transmission Date: 20100115
  Serious: Yes (Other)
  Sender: FDA-Public Use
  Company Number: PHHY2009DE36048

PATIENT
  Age: 56 Year
  Sex: Female

DRUGS (2)
  1. RASILEZ [Suspect]
  2. THYROID HORMONES [Concomitant]

REACTIONS (3)
  - ARRHYTHMIA [None]
  - DIZZINESS [None]
  - EXTRASYSTOLES [None]
